FAERS Safety Report 20004690 (Version 2)
Quarter: 2021Q4

REPORT INFORMATION
  Report Type: Spontaneous
  Country: US (occurrence: US)
  Receive Date: 20211027
  Receipt Date: 20211213
  Transmission Date: 20220303
  Serious: Yes (Other)
  Sender: FDA-Public Use
  Company Number: US-TEVA-2021-US-1968589

PATIENT
  Sex: Female

DRUGS (1)
  1. TRAZODONE [Suspect]
     Active Substance: TRAZODONE HYDROCHLORIDE
     Route: 048

REACTIONS (7)
  - Choking [Unknown]
  - Vomiting [Unknown]
  - Tooth disorder [Unknown]
  - Product solubility abnormal [Unknown]
  - Product size issue [Unknown]
  - Product taste abnormal [Unknown]
  - Product coating issue [Unknown]
